FAERS Safety Report 22818718 (Version 4)
Quarter: 2024Q2

REPORT INFORMATION
  Report Type: Report from Study
  Country: US (occurrence: US)
  Receive Date: 20230814
  Receipt Date: 20240521
  Transmission Date: 20240715
  Serious: Yes (Hospitalization, Other)
  Sender: FDA-Public Use
  Company Number: US-ABBVIE-5364434

PATIENT
  Age: 79 Year
  Sex: Male

DRUGS (3)
  1. SKYRIZI [Suspect]
     Active Substance: RISANKIZUMAB-RZAA
     Indication: Psoriasis
     Dosage: LAST ADMIN DATE: APR 2021
     Route: 058
     Dates: start: 20210409
  2. SKYRIZI [Suspect]
     Active Substance: RISANKIZUMAB-RZAA
     Route: 058
     Dates: start: 20210513
  3. SKYRIZI [Suspect]
     Active Substance: RISANKIZUMAB-RZAA
     Dosage: LAST ADMIN DATE: APR 2021
     Route: 058
     Dates: start: 20210415

REACTIONS (16)
  - Blood pressure decreased [Unknown]
  - Skin cancer [Unknown]
  - Urosepsis [Unknown]
  - Haematochezia [Unknown]
  - Pneumonia aspiration [Unknown]
  - Blood urine present [Unknown]
  - Asthenia [Unknown]
  - Polyp [Unknown]
  - Hypotension [Unknown]
  - Mobility decreased [Unknown]
  - Renal disorder [Unknown]
  - Pneumonia [Unknown]
  - Cardiac disorder [Unknown]
  - Fall [Unknown]
  - Skin mass [Unknown]
  - Body temperature decreased [Unknown]

NARRATIVE: CASE EVENT DATE: 20230510
